FAERS Safety Report 5770793-X (Version None)
Quarter: 2008Q2

REPORT INFORMATION
  Report Type: 
  Country: None (occurrence: None)
  Receive Date: 20080613
  Receipt Date: 20080514
  Transmission Date: 20081010
  Serious: No
  Sender: FDA-Public Use
  Company Number: US-ABBOTT-08P-163-0451848-00

PATIENT
  Sex: Male
  Weight: 122.58 kg

DRUGS (4)
  1. HUMIRA [Suspect]
     Indication: SPONDYLITIS
     Route: 058
     Dates: start: 20080201
  2. METHOTREXATE [Concomitant]
     Indication: SPONDYLITIS
     Dosage: 8-2.5MG PILLS
     Route: 048
     Dates: start: 20070501
  3. SULENDAC [Concomitant]
     Indication: SPONDYLITIS
     Route: 048
     Dates: start: 20060501
  4. FOLIC ACID [Concomitant]
     Indication: VITAMIN SUPPLEMENTATION
     Route: 048
     Dates: start: 20070501

REACTIONS (4)
  - DISTURBANCE IN ATTENTION [None]
  - DIZZINESS [None]
  - MUSCLE SPASMS [None]
  - TINNITUS [None]
